FAERS Safety Report 6370561-4 (Version None)
Quarter: 2009Q3

REPORT INFORMATION
  Report Type: 
  Country: None (occurrence: None)
  Receive Date: 20090923
  Receipt Date: 20090917
  Transmission Date: 20100115
  Serious: Yes (Hospitalization)
  Sender: FDA-Public Use
  Company Number: B0350842A

PATIENT
  Sex: Male
  Weight: 70 kg

DRUGS (3)
  1. COMBIVIR [Suspect]
     Indication: HIV INFECTION
     Dosage: 1TAB TWICE PER DAY
     Route: 048
     Dates: start: 20040805
  2. KALETRA [Suspect]
     Indication: HIV INFECTION
     Route: 048
     Dates: start: 20040805
  3. KYTRIL [Concomitant]

REACTIONS (6)
  - COUGH [None]
  - FATIGUE [None]
  - HAEMOGLOBIN DECREASED [None]
  - PNEUMONIA [None]
  - PRESYNCOPE [None]
  - PYREXIA [None]
